FAERS Safety Report 6496918-9 (Version None)
Quarter: 2009Q4

REPORT INFORMATION
  Report Type: 
  Country: None (occurrence: None)
  Receive Date: 20091211
  Receipt Date: 20091127
  Transmission Date: 20100525
  Serious: Yes (Hospitalization, Other)
  Sender: FDA-Public Use
  Company Number: 1000009741

PATIENT
  Age: 23 Year
  Sex: Male
  Weight: 85 kg

DRUGS (4)
  1. ESCITALOPRAM OXALATE [Suspect]
     Dosage: (400 MG,ONCE), ORAL
     Route: 048
     Dates: start: 20091020, end: 20091020
  2. BUPROPION HCL [Suspect]
     Dosage: (6000 MG,ONCE), ORAL
     Route: 048
     Dates: start: 20091020, end: 20091020
  3. PARACETAMOL (500 MILLIGRAM, TABLETS) [Suspect]
     Dosage: (500 MG,ONCE), ORAL
     Route: 048
     Dates: start: 20091020, end: 20091020
  4. ALCOHOL [Suspect]
     Dosage: 1 BOTTLE OF LIQUOR (ONCE)
     Dates: start: 20091020, end: 20091020

REACTIONS (10)
  - AGGRESSION [None]
  - ALANINE AMINOTRANSFERASE INCREASED [None]
  - ALCOHOL POISONING [None]
  - ASPARTATE AMINOTRANSFERASE INCREASED [None]
  - BLOOD LACTATE DEHYDROGENASE INCREASED [None]
  - INTENTIONAL OVERDOSE [None]
  - MYDRIASIS [None]
  - SUICIDE ATTEMPT [None]
  - VOMITING [None]
  - WHITE BLOOD CELL COUNT INCREASED [None]
